FAERS Safety Report 15700121 (Version 1)
Quarter: 2018Q4

REPORT INFORMATION
  Report Type: Spontaneous
  Country: US (occurrence: US)
  Receive Date: 20181207
  Receipt Date: 20181207
  Transmission Date: 20190205
  Serious: Yes (Other)
  Sender: FDA-Public Use
  Company Number: US-FRESENIUS KABI-FK201812435

PATIENT
  Age: 7 Year
  Sex: Female

DRUGS (2)
  1. CYTARABINE (MANUFACTURER UNKNOWN) [Suspect]
     Active Substance: CYTARABINE
     Indication: ACUTE LYMPHOCYTIC LEUKAEMIA
     Route: 037
  2. CORTICOTROPIN [Suspect]
     Active Substance: CORTICOTROPIN
     Indication: ACUTE LYMPHOCYTIC LEUKAEMIA
     Dosage: 75 IU/M2 TWICE A WEEK; 75 IU/M2 DAILY FOR 4 WEEKS AND 75 IU/M2 ONCE A DAY FOR 3 WEEKS FOLLOWED BY 65
     Route: 065

REACTIONS (2)
  - Mental status changes [Recovered/Resolved]
  - Ataxia [Recovered/Resolved]
